FAERS Safety Report 5001467-0 (Version None)
Quarter: 2006Q2

REPORT INFORMATION
  Report Type: 
  Country: None (occurrence: None)
  Receive Date: 20060512
  Receipt Date: 20051004
  Transmission Date: 20061013
  Serious: Yes (Hospitalization, Other)
  Sender: FDA-Public Use
  Company Number: US-MERCK-0510USA03560

PATIENT
  Age: 24 Year
  Sex: Female
  Weight: 59 kg

DRUGS (8)
  1. VIOXX [Suspect]
     Indication: MENSTRUAL DISORDER
     Route: 048
  2. VIOXX [Suspect]
     Route: 048
  3. VIOXX [Suspect]
     Route: 048
  4. TYLENOL (CAPLET) [Concomitant]
     Route: 065
  5. ALBUTEROL [Concomitant]
     Indication: ASTHMA
     Route: 065
  6. ZOLOFT [Concomitant]
     Route: 065
  7. STRATTERA [Concomitant]
     Route: 065
  8. ADVAIR DISKUS 100/50 [Concomitant]
     Route: 065

REACTIONS (10)
  - CARDIAC DISORDER [None]
  - CARDIOVASCULAR DISORDER [None]
  - CHEST PAIN [None]
  - COSTOCHONDRITIS [None]
  - HYSTERECTOMY [None]
  - JOINT INJURY [None]
  - OVERDOSE [None]
  - PELVIC PAIN [None]
  - THROMBOSIS [None]
  - TUBAL LIGATION [None]
